FAERS Safety Report 12203664 (Version 1)
Quarter: 2016Q1

REPORT INFORMATION
  Report Type: Spontaneous
  Country: IT (occurrence: IT)
  Receive Date: 20160323
  Receipt Date: 20160323
  Transmission Date: 20160526
  Serious: Yes (Hospitalization)
  Sender: FDA-Public Use
  Company Number: IT-CONCORDIA PHARMACEUTICALS INC.-CO-UX-IT-2016-014

PATIENT
  Age: 78 Year
  Sex: Male

DRUGS (10)
  1. ALFUZOSIN HYDROCHLORIDE. [Suspect]
     Active Substance: ALFUZOSIN HYDROCHLORIDE
     Indication: HYPERTENSION
     Route: 048
     Dates: start: 20150101, end: 20151018
  2. AMLODIPINE [Suspect]
     Active Substance: AMLODIPINE BESYLATE
     Route: 048
     Dates: start: 20150101, end: 20151018
  3. FINASTERIDE. [Concomitant]
     Active Substance: FINASTERIDE
  4. AMLODIPINE [Suspect]
     Active Substance: AMLODIPINE BESYLATE
     Indication: HYPERTENSION
     Route: 048
     Dates: start: 20150101, end: 20151018
  5. RANEXA [Suspect]
     Active Substance: RANOLAZINE
     Indication: CORONARY ARTERY DISEASE
     Route: 048
     Dates: start: 20150701, end: 20151018
  6. TELMISARTAN. [Concomitant]
     Active Substance: TELMISARTAN
  7. ACETYLSALICYLIC ACID [Concomitant]
     Active Substance: ASPIRIN
  8. ATORVASTATIN [Concomitant]
     Active Substance: ATORVASTATIN
  9. NEBIVOLOL. [Concomitant]
     Active Substance: NEBIVOLOL
  10. PANTOPRAZOLE [Concomitant]
     Active Substance: PANTOPRAZOLE SODIUM

REACTIONS (3)
  - Vertigo [None]
  - Hypotension [None]
  - Altered state of consciousness [None]

NARRATIVE: CASE EVENT DATE: 20151018
